FAERS Safety Report 17128502 (Version 1)
Quarter: 2019Q4

REPORT INFORMATION
  Report Type: Spontaneous
  Country: US (occurrence: US)
  Receive Date: 20191206
  Receipt Date: 20191206
  Transmission Date: 20200122
  Serious: Yes (Disabling)
  Sender: FDA-Public Use
  Company Number: None

PATIENT
  Age: 52 Year
  Sex: Female
  Weight: 90 kg

DRUGS (2)
  1. LOSARTAN. [Concomitant]
     Active Substance: LOSARTAN
  2. WIXELA INHUB [Suspect]
     Active Substance: FLUTICASONE PROPIONATE\SALMETEROL XINAFOATE
     Indication: ASTHMA
     Route: 055
     Dates: start: 20190501, end: 20191201

REACTIONS (10)
  - Vocal cord disorder [None]
  - Product complaint [None]
  - Injury [None]
  - Laryngitis [None]
  - Aphonia [None]
  - Product substitution issue [None]
  - Dysphonia [None]
  - Oropharyngeal pain [None]
  - Feeling of despair [None]
  - Insurance issue [None]

NARRATIVE: CASE EVENT DATE: 20190904
